FAERS Safety Report 16811666 (Version 1)
Quarter: 2019Q3

REPORT INFORMATION
  Report Type: Spontaneous
  Country: FR (occurrence: FR)
  Receive Date: 20190916
  Receipt Date: 20190916
  Transmission Date: 20191005
  Serious: Yes (Hospitalization)
  Sender: FDA-Public Use
  Company Number: FR-AMERICAN REGENT INC-2019001994

PATIENT
  Age: 52 Year
  Sex: Female
  Weight: 63 kg

DRUGS (1)
  1. FERINJECT [Suspect]
     Active Substance: FERRIC CARBOXYMALTOSE
     Indication: ANAEMIA
     Dosage: 1 DOSAGE FORMS
     Route: 042
     Dates: start: 20190801, end: 20190801

REACTIONS (2)
  - Skin reaction [Not Recovered/Not Resolved]
  - Administration site extravasation [Not Recovered/Not Resolved]

NARRATIVE: CASE EVENT DATE: 20190801
